FAERS Safety Report 5275437-1 (Version None)
Quarter: 2007Q1

REPORT INFORMATION
  Report Type: 
  Country: None (occurrence: None)
  Receive Date: 20070322
  Receipt Date: 20070322
  Transmission Date: 20070707
  Serious: Yes (Other)
  Sender: FDA-Public Use
  Company Number: None

PATIENT
  Age: 67 Year
  Sex: Female
  Weight: 95.2554 kg

DRUGS (4)
  1. LUMIGAN [Suspect]
     Indication: OPEN ANGLE GLAUCOMA
     Dosage: 1 QTT QHS OS
     Dates: start: 20070104
  2. LUMIGAN [Suspect]
     Indication: OPEN ANGLE GLAUCOMA
     Dosage: 1 QTT QHS OS
     Dates: start: 20070204
  3. INSULIN [Concomitant]
  4. DARVON [Concomitant]

REACTIONS (2)
  - PIGMENTATION DISORDER [None]
  - RASH [None]
